FAERS Safety Report 10075857 (Version 3)
Quarter: 2014Q2

REPORT INFORMATION
  Report Type: Report from Study
  Country: JP (occurrence: JP)
  Receive Date: 20140414
  Receipt Date: 20140506
  Transmission Date: 20141212
  Serious: Yes (Other)
  Sender: FDA-Public Use
  Company Number: JP-PFIZER INC-2014101498

PATIENT
  Age: 77 Year
  Sex: Female

DRUGS (8)
  1. CELECOX [Suspect]
     Indication: RHEUMATOID ARTHRITIS
     Dosage: UNK
     Route: 048
  2. CELECOX [Suspect]
     Indication: ANTIPYRESIS
  3. CELECOX [Suspect]
     Indication: ANALGESIC THERAPY
  4. DICLOFENAC [Suspect]
     Indication: RHEUMATOID ARTHRITIS
     Dosage: UNK
  5. DICLOFENAC [Suspect]
     Indication: ANTIPYRESIS
  6. DICLOFENAC [Suspect]
     Indication: ANALGESIC THERAPY
  7. ASPIRIN [Suspect]
     Indication: RHEUMATOID ARTHRITIS
     Dosage: LOW DOSE
     Route: 048
  8. ASPIRIN [Suspect]
     Indication: ANTIPLATELET THERAPY

REACTIONS (1)
  - Gastrointestinal erosion [Unknown]
